FAERS Safety Report 6911797-0 (Version None)
Quarter: 2010Q3

REPORT INFORMATION
  Report Type: 
  Country: None (occurrence: None)
  Receive Date: 20100806
  Receipt Date: 20070807
  Transmission Date: 20110219
  Serious: No
  Sender: FDA-Public Use
  Company Number: US-PFIZER INC-2007055322

PATIENT
  Sex: Male

DRUGS (3)
  1. DETROL LA [Suspect]
     Indication: HYPERTONIC BLADDER
     Route: 048
     Dates: start: 20070507
  2. DETROL LA [Suspect]
     Indication: URGE INCONTINENCE
  3. TOPROL-XL [Concomitant]

REACTIONS (3)
  - DRUG EFFECT DECREASED [None]
  - MALAISE [None]
  - URINARY INCONTINENCE [None]
